FAERS Safety Report 7616249 (Version 4)
Quarter: 2012Q4

REPORT INFORMATION
  Report Type: Report from Study
  Country: FR (occurrence: FR)
  Receive Date: 20101004
  Receipt Date: 20121122
  Transmission Date: 20130627
  Serious: Yes (Hospitalization)
  Sender: FDA-Public Use
  Company Number: FR-US-EMD SERONO, INC.-7018104

PATIENT
  Age: 2 Year
  Sex: Female

DRUGS (1)
  1. SAIZEN [(SOMATROPIN (RDNA ORIGIN) FOR INJECTION)] [Suspect]
     Indication: SMALL FOR DATES BABY
     Dates: start: 20100517

REACTIONS (1)
  - Adenotonsillectomy [Recovered/Resolved]
